FAERS Safety Report 9705613 (Version 1)
Quarter: 2013Q4

REPORT INFORMATION
  Report Type: Spontaneous
  Country: US (occurrence: US)
  Receive Date: 20131122
  Receipt Date: 20131122
  Transmission Date: 20140711
  Serious: Yes (Disabling)
  Sender: FDA-Public Use
  Company Number: US-GILEAD-2008-0017230

PATIENT
  Sex: Male

DRUGS (10)
  1. LETAIRIS [Suspect]
     Indication: PULMONARY ARTERIAL HYPERTENSION
     Route: 048
  2. LISINOPRIL [Concomitant]
     Route: 048
  3. DILTIAZEM [Concomitant]
     Route: 048
  4. ALBUTEROL [Concomitant]
  5. METHIMAZOLE [Concomitant]
     Route: 048
  6. GLIMEPIRIDE [Concomitant]
     Route: 048
  7. ASA [Concomitant]
     Route: 048
  8. KLORCON [Concomitant]
  9. PRILOSEC OTC [Concomitant]
     Route: 048
  10. ALPHAGAN P [Concomitant]

REACTIONS (1)
  - Fluid retention [None]
